FAERS Safety Report 9674733 (Version 1)
Quarter: 2013Q4

REPORT INFORMATION
  Report Type: Spontaneous
  Country: US (occurrence: None)
  Receive Date: 20131106
  Receipt Date: 20131106
  Transmission Date: 20140711
  Serious: Yes (Other)
  Sender: FDA-Public Use
  Company Number: None

PATIENT
  Age: 63 Year
  Sex: Female
  Weight: 66.68 kg

DRUGS (2)
  1. ALBUTEROL [Suspect]
     Indication: CHRONIC OBSTRUCTIVE PULMONARY DISEASE
     Dosage: ONE VIAL FOUR TIMES DAILY INHALATION
     Route: 055
     Dates: start: 20130927, end: 20131104
  2. ALBUTEROL [Suspect]
     Indication: EMPHYSEMA
     Dosage: ONE VIAL FOUR TIMES DAILY INHALATION
     Route: 055
     Dates: start: 20130927, end: 20131104

REACTIONS (2)
  - Epistaxis [None]
  - Product quality issue [None]
